FAERS Safety Report 9680069 (Version 2)
Quarter: 2014Q2

REPORT INFORMATION
  Report Type: Spontaneous
  Country: US (occurrence: US)
  Receive Date: 20131111
  Receipt Date: 20140611
  Transmission Date: 20141212
  Serious: No
  Sender: FDA-Public Use
  Company Number: US-009507513-1310USA010324

PATIENT
  Age: 21 Year
  Sex: Female
  Weight: 104.31 kg

DRUGS (1)
  1. IMPLANON [Suspect]
     Indication: CONTRACEPTION
     Dosage: UNK
     Route: 059
     Dates: start: 201110, end: 20131021

REACTIONS (5)
  - Device difficult to use [Recovered/Resolved]
  - Pain [Unknown]
  - Discomfort [Unknown]
  - Implant site scar [Unknown]
  - Implant site fibrosis [Unknown]
